FAERS Safety Report 25752847 (Version 1)
Quarter: 2025Q3

REPORT INFORMATION
  Report Type: Spontaneous
  Country: CN (occurrence: US)
  Receive Date: 20250902
  Receipt Date: 20250902
  Transmission Date: 20251021
  Serious: No
  Sender: GE HEALTHCARE
  Company Number: CN-GE HEALTHCARE-2025CSU011735

PATIENT
  Age: 10 Year
  Sex: Male

DRUGS (1)
  1. ADREVIEW [Suspect]
     Active Substance: IOBENGUANE I-123
     Indication: Single photon emission computerised tomogram
     Route: 013

REACTIONS (3)
  - Radioisotope scan abnormal [Recovered/Resolved]
  - Incorrect route of product administration [Recovered/Resolved]
  - No adverse event [Recovered/Resolved]
